FAERS Safety Report 8612471-5 (Version None)
Quarter: 2012Q3

REPORT INFORMATION
  Report Type: 
  Country: None (occurrence: None)
  Receive Date: 20120822
  Receipt Date: 20120820
  Transmission Date: 20120928
  Serious: Yes (Death)
  Sender: FDA-Public Use
  Company Number: AU-B.I. PHARMACEUTICALS,INC./RIDGEFIELD-2012-AU-01365AU

PATIENT
  Sex: Male

DRUGS (1)
  1. MOBIC [Suspect]
     Dates: start: 20120731

REACTIONS (1)
  - DEATH [None]
